FAERS Safety Report 5264933-9 (Version None)
Quarter: 2007Q1

REPORT INFORMATION
  Report Type: 
  Country: None (occurrence: None)
  Receive Date: 20061117
  Receipt Date: 20051005
  Transmission Date: 20070707
  Serious: Yes (Other)
  Sender: FDA-Public Use
  Company Number: US-JNJFOC-20050801278

PATIENT
  Age: 37 Year
  Sex: Male
  Weight: 73.9363 kg

DRUGS (1)
  1. LEVAQUIN [Suspect]
     Indication: PROSTATITIS
     Dosage: 500 MG, ORAL
     Route: 048
     Dates: start: 20010101, end: 20010101

REACTIONS (1)
  - TENDON DISORDER [None]
